FAERS Safety Report 5129191-4 (Version None)
Quarter: 2006Q4

REPORT INFORMATION
  Report Type: 
  Country: None (occurrence: None)
  Receive Date: 20061011
  Receipt Date: 20060921
  Transmission Date: 20070319
  Serious: Yes (Hospitalization)
  Sender: FDA-Public Use
  Company Number: GB200609005385

PATIENT
  Age: 47 Year
  Sex: Male

DRUGS (1)
  1. HUMULIN 70/30 [Suspect]
     Dates: start: 20030101

REACTIONS (3)
  - INCOHERENT [None]
  - LOSS OF CONSCIOUSNESS [None]
  - TREMOR [None]
